FAERS Safety Report 9504214 (Version 1)
Quarter: 2013Q3

REPORT INFORMATION
  Report Type: Spontaneous
  Country: US (occurrence: US)
  Receive Date: 20130906
  Receipt Date: 20130906
  Transmission Date: 20140515
  Serious: Yes (Hospitalization)
  Sender: FDA-Public Use
  Company Number: US-GLAXOSMITHKLINE-A1040179A

PATIENT
  Sex: Female

DRUGS (1)
  1. LAMICTAL [Suspect]
     Indication: CONVULSION
     Dosage: 25MG UNKNOWN
     Route: 065
     Dates: start: 201306, end: 20130801

REACTIONS (2)
  - Convulsion [Unknown]
  - Exposure during pregnancy [Unknown]
